FAERS Safety Report 5346239-2 (Version None)
Quarter: 2007Q2

REPORT INFORMATION
  Report Type: 
  Country: None (occurrence: None)
  Receive Date: 20070426
  Receipt Date: 20060316
  Transmission Date: 20071010
  Serious: Yes (Other)
  Sender: FDA-Public Use
  Company Number: US-JNJFOC-20060304881

PATIENT
  Sex: Female

DRUGS (1)
  1. ULTRAM [Suspect]
     Indication: OVERDOSE
     Dosage: 30 IN 1 DAY

REACTIONS (2)
  - CONVULSION [None]
  - INTENTIONAL OVERDOSE [None]
